FAERS Safety Report 15812739 (Version 3)
Quarter: 2019Q4

REPORT INFORMATION
  Report Type: Report from Study
  Country: US (occurrence: US)
  Receive Date: 20190111
  Receipt Date: 20191014
  Transmission Date: 20200122
  Serious: Yes (Other)
  Sender: FDA-Public Use
  Company Number: US-SA-2019SA006902

PATIENT
  Age: 82 Year
  Sex: Male

DRUGS (3)
  1. LANTUS SOLOSTAR [Concomitant]
     Active Substance: INSULIN GLARGINE
     Indication: TYPE 2 DIABETES MELLITUS
  2. INSULIN GLULISINE [Suspect]
     Active Substance: INSULIN GLULISINE
     Dosage: UNK
  3. INSULIN GLULISINE [Suspect]
     Active Substance: INSULIN GLULISINE
     Indication: TYPE 2 DIABETES MELLITUS
     Dosage: 10 U, TID
     Route: 058

REACTIONS (3)
  - Memory impairment [Unknown]
  - Dementia [Not Recovered/Not Resolved]
  - Condition aggravated [Not Recovered/Not Resolved]
